FAERS Safety Report 11117454 (Version 3)
Quarter: 2015Q3

REPORT INFORMATION
  Report Type: Spontaneous
  Country: FR (occurrence: FR)
  Receive Date: 20150516
  Receipt Date: 20150806
  Transmission Date: 20151125
  Serious: Yes (Life-Threatening, Hospitalization, Other)
  Sender: FDA-Public Use
  Company Number: FR-MERCK-1311FRA008923

PATIENT
  Age: 19 Year
  Sex: Female

DRUGS (1)
  1. VARNOLINE CONTINU [Suspect]
     Active Substance: DESOGESTREL\ETHINYL ESTRADIOL
     Dosage: 1 DF, QD
     Route: 048
     Dates: start: 20100907, end: 20101119

REACTIONS (8)
  - Seizure [Recovered/Resolved]
  - Cerebral venous thrombosis [Recovered/Resolved with Sequelae]
  - Acne [Not Recovered/Not Resolved]
  - Disturbance in attention [Unknown]
  - Thrombocytosis [Unknown]
  - Amenorrhoea [Not Recovered/Not Resolved]
  - Coma [Recovered/Resolved]
  - Iron deficiency anaemia [Recovered/Resolved]

NARRATIVE: CASE EVENT DATE: 2010
